FAERS Safety Report 7266456-4 (Version None)
Quarter: 2011Q1

REPORT INFORMATION
  Report Type: 
  Country: None (occurrence: None)
  Receive Date: 20110131
  Receipt Date: 20110126
  Transmission Date: 20110831
  Serious: Yes (Other)
  Sender: FDA-Public Use
  Company Number: DE-GILEAD-2010-0033528

PATIENT
  Sex: Male
  Weight: 67 kg

DRUGS (7)
  1. TRUVADA [Suspect]
     Indication: HEPATITIS B
     Route: 048
     Dates: start: 20060807
  2. NORVIR [Concomitant]
     Indication: HIV INFECTION
     Dates: start: 20090401
  3. FLUCONAZOLE [Concomitant]
     Indication: CRYPTOCOCCOSIS
     Dates: start: 20020101
  4. PREZISTA [Concomitant]
     Indication: HIV INFECTION
     Dates: start: 20090401
  5. INTERFERON [Concomitant]
  6. COTRIM [Concomitant]
     Indication: ANTIFUNGAL PROPHYLAXIS
     Dates: start: 19850101
  7. TRUVADA [Suspect]
     Indication: HIV INFECTION

REACTIONS (3)
  - DRUG INEFFECTIVE [None]
  - GENOTYPE DRUG RESISTANCE TEST POSITIVE [None]
  - HEPATITIS B DNA INCREASED [None]
